FAERS Safety Report 8127380 (Version 3)
Quarter: 2013Q4

REPORT INFORMATION
  Report Type: Spontaneous
  Country: US (occurrence: US)
  Receive Date: 20110908
  Receipt Date: 20131210
  Transmission Date: 20140711
  Serious: Yes (Hospitalization, Other)
  Sender: FDA-Public Use
  Company Number: US-PFIZER INC-2011208271

PATIENT
  Age: 36 Year
  Sex: Male
  Weight: 109 kg

DRUGS (10)
  1. CHANTIX [Suspect]
     Indication: SMOKING CESSATION THERAPY
     Dosage: UNK
     Dates: start: 20070301, end: 20080902
  2. CHANTIX [Suspect]
     Dosage: STARTING MONTH PACK
     Dates: start: 20070323
  3. CHANTIX [Suspect]
     Dosage: 1 MG, MONTH PACK
     Dates: start: 20070323
  4. ALBUTEROL [Concomitant]
     Dosage: UNK
     Dates: start: 20030402
  5. NEXIUM [Concomitant]
     Dosage: 40 MG, 1X/DAY
     Dates: start: 20070322
  6. TRICOR [Concomitant]
     Dosage: 145 MG, 1X/DAY
     Dates: start: 20070801
  7. BENICAR HCT [Concomitant]
     Dosage: 40/25 MG ONCE DAILY
     Dates: start: 20070802
  8. LIPITOR [Concomitant]
     Dosage: 20 MG, 1X/DAY
     Dates: start: 20070802
  9. FLEXERIL [Concomitant]
     Dosage: 10 MG, 3X/DAY
     Dates: start: 20080602
  10. REMERON [Concomitant]
     Dosage: 30 MG, 1X/DAY AT BEDTIME
     Dates: start: 20080821

REACTIONS (6)
  - Suicide attempt [Unknown]
  - Depression [Unknown]
  - Mood altered [Unknown]
  - Abnormal behaviour [Unknown]
  - Impaired driving ability [Unknown]
  - Emotional distress [Unknown]
